FAERS Safety Report 25347750 (Version 1)
Quarter: 2025Q2

REPORT INFORMATION
  Report Type: Spontaneous
  Country: US (occurrence: US)
  Receive Date: 20250522
  Receipt Date: 20250522
  Transmission Date: 20250716
  Serious: No
  Sender: BAUSCH AND LOMB
  Company Number: US-BAUSCH-BL-2025-006478

PATIENT
  Age: 15 Year
  Sex: Female

DRUGS (1)
  1. CABTREO [Suspect]
     Active Substance: ADAPALENE\BENZOYL PEROXIDE\CLINDAMYCIN PHOSPHATE
     Indication: Acne
     Route: 061
     Dates: start: 20250516, end: 20250517

REACTIONS (3)
  - Inflammation [Unknown]
  - Skin disorder [Unknown]
  - Erythema [Unknown]

NARRATIVE: CASE EVENT DATE: 20250517
